FAERS Safety Report 19002497 (Version 2)
Quarter: 2021Q3

REPORT INFORMATION
  Report Type: Spontaneous
  Country: US (occurrence: US)
  Receive Date: 20210312
  Receipt Date: 20210701
  Transmission Date: 20211014
  Serious: Yes (Life-Threatening, Hospitalization)
  Sender: FDA-Public Use
  Company Number: US-MYLANLABS-2021M1014621

PATIENT
  Age: 77 Year
  Sex: Male

DRUGS (6)
  1. PREDNISONE. [Suspect]
     Active Substance: PREDNISONE
     Indication: MYASTHENIA GRAVIS
     Dosage: 20 MILLIGRAM, QD
     Route: 065
  2. PREDNISONE. [Suspect]
     Active Substance: PREDNISONE
     Dosage: 60 MILLIGRAM, QD, ON DAY 7 OF ADMISSION
     Route: 065
  3. ECULIZUMAB [Concomitant]
     Active Substance: ECULIZUMAB
     Indication: MYASTHENIA GRAVIS
     Dosage: 900 MILLIGRAM, QW, INDUCTION DOSE FOR 4 WEEKS
     Route: 042
  4. PYRIDOSTIGMINE                     /00221802/ [Suspect]
     Active Substance: PYRIDOSTIGMINE BROMIDE
     Indication: MYASTHENIA GRAVIS
     Dosage: 60 MILLIGRAM, TID, 3 TIMES DAILY
     Route: 065
  5. IMMUNOGLOBULINS NOS [Suspect]
     Active Substance: IMMUNE GLOBULIN NOS
     Indication: MYASTHENIA GRAVIS
     Dosage: 2G/KG
     Route: 042
  6. ECULIZUMAB [Concomitant]
     Active Substance: ECULIZUMAB
     Dosage: 1200 MILLIGRAM, EVERY 2 WEEKS STARTING AT WEEK 5
     Route: 042

REACTIONS (1)
  - Drug ineffective [Unknown]
